FAERS Safety Report 6371414-8 (Version None)
Quarter: 2009Q3

REPORT INFORMATION
  Report Type: 
  Country: None (occurrence: None)
  Receive Date: 20090923
  Receipt Date: 20071126
  Transmission Date: 20100115
  Serious: Yes (Other)
  Sender: FDA-Public Use
  Company Number: US-ASTRAZENECA-2007UW13896

PATIENT
  Age: 15482 Day
  Sex: Male

DRUGS (11)
  1. SEROQUEL [Suspect]
     Indication: SLEEP DISORDER
     Route: 048
     Dates: start: 20001201, end: 20031212
  2. SEROQUEL [Suspect]
     Route: 048
     Dates: start: 20020109
  3. HUMULIN R [Concomitant]
     Dosage: STRENGTH-70/30
     Dates: start: 20011101
  4. ACTOS [Concomitant]
     Dosage: STRENGTH-30 MG, 45 MG
     Dates: start: 20011101
  5. ZESTRIL [Concomitant]
     Dates: start: 20011101
  6. GLUCOPHAGE [Concomitant]
     Dates: start: 20011213
  7. PROPRANOLOL [Concomitant]
     Dates: start: 20020213
  8. RISPERDAL [Concomitant]
     Dosage: STRENGTH-3 MG, 4 MG
     Dates: start: 20020529
  9. CLONAZEPAM [Concomitant]
     Dosage: STRENGTH-0.5 MG, 1 MG
     Dates: start: 20020821
  10. EFFEXOR XR [Concomitant]
     Dosage: STRENGTH-37.5 MG, 150 MG
     Dates: start: 20020821
  11. CELEXA [Concomitant]
     Dosage: STRENGTH-20 MG, 40 MG
     Dates: start: 20020109

REACTIONS (1)
  - DIABETIC KETOACIDOSIS [None]
